FAERS Safety Report 18156444 (Version 1)
Quarter: 2020Q3

REPORT INFORMATION
  Report Type: Spontaneous
  Country: US (occurrence: US)
  Receive Date: 20200817
  Receipt Date: 20200817
  Transmission Date: 20201103
  Serious: No
  Sender: FDA-Public Use
  Company Number: None

PATIENT
  Sex: Female

DRUGS (14)
  1. ALBUTEROL NEB [Suspect]
     Active Substance: ALBUTEROL
  2. EMGALITY [Concomitant]
     Active Substance: GALCANEZUMAB-GNLM
  3. ESTRACE [Concomitant]
     Active Substance: ESTRADIOL
  4. FLOVENT HFA [Concomitant]
     Active Substance: FLUTICASONE PROPIONATE
  5. CICLOPLROX [Concomitant]
  6. CYCLOBENZAPR [Concomitant]
     Active Substance: CYCLOBENZAPRINE
  7. MIDODRINE [Concomitant]
     Active Substance: MIDODRINE
  8. TRAISDERM?SC [Concomitant]
  9. ENBREL [Suspect]
     Active Substance: ETANERCEPT
     Indication: PSORIATIC ARTHROPATHY
     Dosage: ?          OTHER DOSE:1 CART;?
     Route: 058
     Dates: start: 20200207
  10. CLINDAMYCIN. [Concomitant]
     Active Substance: CLINDAMYCIN
  11. PROPRANOLOL [Concomitant]
     Active Substance: PROPRANOLOL HYDROCHLORIDE
  12. CYTOMEL [Concomitant]
     Active Substance: LIOTHYRONINE SODIUM
  13. SAVELLA [Concomitant]
     Active Substance: MILNACIPRAN HYDROCHLORIDE
  14. TACROLIMUS. [Concomitant]
     Active Substance: TACROLIMUS

REACTIONS (1)
  - Spinal operation [None]
